FAERS Safety Report 5889358-4 (Version None)
Quarter: 2008Q3

REPORT INFORMATION
  Report Type: 
  Country: None (occurrence: None)
  Receive Date: 20080919
  Receipt Date: 20080909
  Transmission Date: 20090109
  Serious: Yes (Hospitalization)
  Sender: FDA-Public Use
  Company Number: US-ELI_LILLY_AND_COMPANY-US200808003574

PATIENT
  Sex: Female
  Weight: 71.202 kg

DRUGS (6)
  1. BYETTA [Suspect]
     Indication: TYPE 2 DIABETES MELLITUS
     Dosage: 5 UG, 2/D
     Route: 058
     Dates: start: 20060221, end: 20060321
  2. BYETTA [Suspect]
     Dosage: 10 UG, 2/D
     Route: 058
     Dates: start: 20060321, end: 20070822
  3. METFORMIN HCL [Concomitant]
     Indication: TYPE 2 DIABETES MELLITUS
     Dosage: 1000 MG, DAILY (1/D)
     Route: 048
     Dates: start: 19970101, end: 20070801
  4. LISINOPRIL [Concomitant]
     Indication: HYPERTENSION
     Dosage: 20 MG, DAILY (1/D)
     Route: 048
     Dates: end: 20070801
  5. HYDROCHLOROTHIAZIDE [Concomitant]
     Indication: HYPERTENSION
     Dosage: 125 MG, DAILY (1/D)
     Dates: start: 20070101, end: 20070801
  6. WELLBUTRIN [Concomitant]
     Indication: DEPRESSION
     Dosage: 150 MG, DAILY (1/D)
     Dates: end: 20070801

REACTIONS (8)
  - BILIARY NEOPLASM [None]
  - CHOLELITHIASIS [None]
  - DEHYDRATION [None]
  - MALNUTRITION [None]
  - PANCREATITIS ACUTE [None]
  - POST PROCEDURAL BILE LEAK [None]
  - PROCEDURAL COMPLICATION [None]
  - WEIGHT DECREASED [None]
